FAERS Safety Report 6066558-4 (Version None)
Quarter: 2009Q1

REPORT INFORMATION
  Report Type: 
  Country: None (occurrence: None)
  Receive Date: 20090205
  Receipt Date: 20090130
  Transmission Date: 20090719
  Serious: Yes (Other)
  Sender: FDA-Public Use
  Company Number: A0752472A

PATIENT
  Age: 49 Year
  Sex: Female
  Weight: 109.5 kg

DRUGS (6)
  1. ADVAIR DISKUS 100/50 [Suspect]
     Indication: ASTHMA
     Route: 065
     Dates: start: 20060101
  2. TAGAMET [Concomitant]
  3. NEXIUM [Concomitant]
  4. ALBUTEROL [Concomitant]
  5. XOPENEX [Concomitant]
  6. SINGULAIR [Concomitant]

REACTIONS (3)
  - DRUG DEPENDENCE [None]
  - DYSPHONIA [None]
  - OROPHARYNGEAL DISCOMFORT [None]
